FAERS Safety Report 13718108 (Version 3)
Quarter: 2017Q3

REPORT INFORMATION
  Report Type: Spontaneous
  Country: FR (occurrence: FR)
  Receive Date: 20170705
  Receipt Date: 20170907
  Transmission Date: 20171127
  Serious: Yes (Disabling)
  Sender: FDA-Public Use
  Company Number: FR-AMGEN-FRASP2017102015

PATIENT
  Age: 61 Year
  Sex: Female

DRUGS (1)
  1. PROCORALAN [Suspect]
     Active Substance: IVABRADINE
     Indication: HYPERTENSION
     Dosage: UNK
     Route: 065
     Dates: start: 201511, end: 201601

REACTIONS (4)
  - Off label use [Unknown]
  - Loss of personal independence in daily activities [Recovered/Resolved]
  - Astigmatism [Recovered/Resolved]
  - Vision blurred [Recovered/Resolved]

NARRATIVE: CASE EVENT DATE: 20151215
